FAERS Safety Report 12115951 (Version 1)
Quarter: 2016Q1

REPORT INFORMATION
  Report Type: Spontaneous
  Country: None (occurrence: US)
  Receive Date: 20160225
  Receipt Date: 20160225
  Transmission Date: 20160526
  Serious: No
  Sender: FDA-Public Use
  Company Number: US-LANTHEUS-LMI-2015-00607

PATIENT
  Age: 82 Year
  Sex: Male
  Weight: 96 kg

DRUGS (1)
  1. DEFINITY [Suspect]
     Active Substance: PERFLUTREN
     Indication: ECHOCARDIOGRAM
     Dosage: A TOTAL OF 4 ML DILUTED DEFINITY (2 ML DEFINITY DILTUTED IN 8 ML NORMAL SALINE) INCREMENTALLY OVER S
     Route: 040
     Dates: start: 20151026, end: 20151026

REACTIONS (3)
  - Thirst [Recovered/Resolved]
  - Unresponsive to stimuli [Recovered/Resolved]
  - Pain in extremity [Recovered/Resolved]

NARRATIVE: CASE EVENT DATE: 20151026
